FAERS Safety Report 15885821 (Version 1)
Quarter: 2019Q1

REPORT INFORMATION
  Report Type: Spontaneous
  Country: US (occurrence: US)
  Receive Date: 20190108
  Receipt Date: 20190108
  Transmission Date: 20190417
  Serious: Yes (Hospitalization)
  Sender: FDA-Public Use
  Company Number: None

PATIENT
  Age: 58 Year
  Sex: Male

DRUGS (21)
  1. ESCITALOPRAM [Concomitant]
     Active Substance: ESCITALOPRAM OXALATE
  2. FLEXARIL [Concomitant]
  3. LIDOCAINE. [Concomitant]
     Active Substance: LIDOCAINE
  4. RISPERDAL [Concomitant]
     Active Substance: RISPERIDONE
  5. ALDACTONE [Concomitant]
     Active Substance: SPIRONOLACTONE
  6. LACTULOSE. [Concomitant]
     Active Substance: LACTULOSE
  7. ALBUTEROL. [Concomitant]
     Active Substance: ALBUTEROL
  8. BACTROBAN [Concomitant]
     Active Substance: MUPIROCIN\MUPIROCIN CALCIUM
  9. PROTONIX [Concomitant]
     Active Substance: PANTOPRAZOLE SODIUM
  10. HYDROCORTISONE. [Concomitant]
     Active Substance: HYDROCORTISONE
  11. KENALOG [Concomitant]
     Active Substance: TRIAMCINOLONE ACETONIDE
  12. BACLOFEN. [Concomitant]
     Active Substance: BACLOFEN
  13. LANTUS [Concomitant]
     Active Substance: INSULIN GLARGINE
  14. CORGARD [Concomitant]
     Active Substance: NADOLOL
  15. CIPRO [Concomitant]
     Active Substance: CIPROFLOXACIN HYDROCHLORIDE
  16. CELEXA [Concomitant]
     Active Substance: CITALOPRAM HYDROBROMIDE
  17. LASIX [Concomitant]
     Active Substance: FUROSEMIDE
  18. NICOTINE. [Concomitant]
     Active Substance: NICOTINE
  19. ZEPATIER [Suspect]
     Active Substance: ELBASVIR\GRAZOPREVIR
     Dates: start: 20170719, end: 20171107
  20. SOFOSBUVIR 400MG [Suspect]
     Active Substance: SOFOSBUVIR
     Dates: start: 20170719, end: 20171107
  21. METFORMIN [Concomitant]
     Active Substance: METFORMIN HYDROCHLORIDE

REACTIONS (3)
  - Hepatitis C RNA [None]
  - Mental disorder [None]
  - Hepatic encephalopathy [None]

NARRATIVE: CASE EVENT DATE: 20171105
